FAERS Safety Report 5942118-8 (Version None)
Quarter: 2008Q4

REPORT INFORMATION
  Report Type: 
  Country: None (occurrence: None)
  Receive Date: 20081104
  Receipt Date: 20081104
  Transmission Date: 20090506
  Serious: No
  Sender: FDA-Public Use
  Company Number: None

PATIENT
  Age: 62 Year
  Sex: Male
  Weight: 85.73 kg

DRUGS (1)
  1. TERAZOSIN HCL [Suspect]
     Dosage: 5 MG BID PO
     Route: 048
     Dates: start: 20070618, end: 20080314

REACTIONS (1)
  - TREATMENT FAILURE [None]
